FAERS Safety Report 23938128 (Version 1)
Quarter: 2024Q2

REPORT INFORMATION
  Report Type: Report from Study
  Country: US (occurrence: US)
  Receive Date: 20240604
  Receipt Date: 20240604
  Transmission Date: 20240716
  Serious: Yes (Hospitalization, Other)
  Sender: FDA-Public Use
  Company Number: US-MYLANLABS-2024M1049662

PATIENT
  Age: 40 Year
  Sex: Female
  Weight: 72.57 kg

DRUGS (2)
  1. GEODON [Suspect]
     Active Substance: ZIPRASIDONE HYDROCHLORIDE\ZIPRASIDONE MESYLATE
     Indication: Product used for unknown indication
     Dosage: 80 MILLIGRAM, BID
     Route: 065
     Dates: start: 202012, end: 202108
  2. GEODON [Suspect]
     Active Substance: ZIPRASIDONE HYDROCHLORIDE\ZIPRASIDONE MESYLATE
     Indication: Product used for unknown indication
     Dosage: UNK
     Route: 065

REACTIONS (9)
  - Hallucination, auditory [Not Recovered/Not Resolved]
  - Dystonia [Unknown]
  - Parkinsonism [Unknown]
  - Disturbance in attention [Unknown]
  - Apathy [Unknown]
  - Depression [Unknown]
  - Insomnia [Unknown]
  - Bradykinesia [Unknown]
  - Tremor [Unknown]

NARRATIVE: CASE EVENT DATE: 20201201
